FAERS Safety Report 9354747 (Version 4)
Quarter: 2013Q3

REPORT INFORMATION
  Report Type: Spontaneous
  Country: DE (occurrence: DE)
  Receive Date: 20130619
  Receipt Date: 20130830
  Transmission Date: 20140515
  Serious: Yes (Other)
  Sender: FDA-Public Use
  Company Number: DE-AMGEN-DEUSP2013041773

PATIENT
  Age: 82 Year
  Sex: Male

DRUGS (1)
  1. ARANESP [Suspect]
     Indication: NEPHROGENIC ANAEMIA
     Dosage: UNK UNK, Q2WK
     Route: 065
     Dates: start: 2007

REACTIONS (9)
  - Haemoglobin decreased [Not Recovered/Not Resolved]
  - Therapeutic response decreased [Unknown]
  - Osteoarthritis [Unknown]
  - Cholesteatoma [Unknown]
  - Post procedural infection [Unknown]
  - Myelodysplastic syndrome [Unknown]
  - Aplasia pure red cell [Not Recovered/Not Resolved]
  - Inflammation [Unknown]
  - C-reactive protein increased [Recovered/Resolved]
